FAERS Safety Report 5372090-3 (Version None)
Quarter: 2007Q2

REPORT INFORMATION
  Report Type: 
  Country: None (occurrence: None)
  Receive Date: 20070615
  Receipt Date: 20070517
  Transmission Date: 20071010
  Serious: No
  Sender: FDA-Public Use
  Company Number: SP01206

PATIENT
  Age: 50 Year
  Sex: Female

DRUGS (2)
  1. XIFAXAN [Suspect]
     Indication: FLATULENCE
     Dosage: 1200 MG (400 MG, 3 IN 1 D), ORAL
     Route: 048
  2. XIFAXAN [Suspect]
     Indication: IRRITABLE BOWEL SYNDROME
     Dosage: 1200 MG (400 MG, 3 IN 1 D), ORAL
     Route: 048

REACTIONS (1)
  - DRUG INEFFECTIVE [None]
